FAERS Safety Report 5415365-1 (Version None)
Quarter: 2007Q3

REPORT INFORMATION
  Report Type: 
  Country: None (occurrence: None)
  Receive Date: 20070713
  Receipt Date: 20070426
  Transmission Date: 20080115
  Serious: Yes (Other)
  Sender: FDA-Public Use
  Company Number: US-JNJFOC-20060902704

PATIENT
  Age: 21 Year
  Sex: Female
  Weight: 75 kg

DRUGS (2)
  1. ORTHO EVRA [Suspect]
     Indication: CONTRACEPTION
     Dosage: 20-150
     Dates: start: 20020101, end: 20041001
  2. ACIPHEX (RABEPRAZOLE SODIUM) UNSPECIFIED [Concomitant]

REACTIONS (1)
  - PORTAL VEIN THROMBOSIS [None]
